FAERS Safety Report 14458598 (Version 1)
Quarter: 2018Q1

REPORT INFORMATION
  Report Type: Spontaneous
  Country: CN (occurrence: CN)
  Receive Date: 20180130
  Receipt Date: 20180130
  Transmission Date: 20180509
  Serious: Yes (Other)
  Sender: FDA-Public Use
  Company Number: CN-BAYER-2018-018662

PATIENT
  Age: 62 Year
  Sex: Male
  Weight: 59.5 kg

DRUGS (1)
  1. BAYASPIRIN 100 MG [Suspect]
     Active Substance: ASPIRIN
     Indication: CORONARY ARTERY DISEASE
     Dosage: 100 MG, QD
     Route: 048
     Dates: start: 20171105, end: 20171108

REACTIONS (1)
  - Gastrointestinal haemorrhage [Recovering/Resolving]

NARRATIVE: CASE EVENT DATE: 20171108
